FAERS Safety Report 11634062 (Version 1)
Quarter: 2015Q4

REPORT INFORMATION
  Report Type: Spontaneous
  Country: FR (occurrence: FR)
  Receive Date: 20151015
  Receipt Date: 20151015
  Transmission Date: 20160304
  Serious: Yes (Hospitalization)
  Sender: FDA-Public Use
  Company Number: FR-GE HEALTHCARE MEDICAL DIAGNOSTICS-VISP-PR-1506S-0234

PATIENT
  Age: 57 Year
  Sex: Female

DRUGS (3)
  1. VISIPAQUE [Suspect]
     Active Substance: IODIXANOL
     Indication: DIAGNOSTIC PROCEDURE
  2. VISIPAQUE [Suspect]
     Active Substance: IODIXANOL
     Indication: ASTHENIA
     Route: 042
     Dates: start: 20150601, end: 20150601
  3. VISIPAQUE [Suspect]
     Active Substance: IODIXANOL
     Indication: DYSPNOEA

REACTIONS (3)
  - Type I hypersensitivity [Recovered/Resolved]
  - Urticaria [Recovered/Resolved]
  - Anaphylactic shock [Recovered/Resolved]

NARRATIVE: CASE EVENT DATE: 20150601
